FAERS Safety Report 17558383 (Version 1)
Quarter: 2020Q1

REPORT INFORMATION
  Report Type: Spontaneous
  Country: HU (occurrence: HU)
  Receive Date: 20200318
  Receipt Date: 20200318
  Transmission Date: 20200409
  Serious: Yes (Hospitalization, Other)
  Sender: FDA-Public Use
  Company Number: HU-ALLERGAN-2011704US

PATIENT
  Sex: Male

DRUGS (4)
  1. OLANZAPINE TEVA [Suspect]
     Active Substance: OLANZAPINE
     Dosage: 20 MG
  2. CARIPRAZINE HCL - BP [Suspect]
     Active Substance: CARIPRAZINE HYDROCHLORIDE
     Indication: PRODUCT USED FOR UNKNOWN INDICATION
     Dates: start: 201906
  3. OLANZAPINE TEVA [Suspect]
     Active Substance: OLANZAPINE
     Indication: PRODUCT USED FOR UNKNOWN INDICATION
  4. RIVOTRIL [Concomitant]
     Active Substance: CLONAZEPAM
     Indication: PRODUCT USED FOR UNKNOWN INDICATION
     Dosage: 3 TIMES/DAY (0.5 MG, 1 MG 0.5 MG)

REACTIONS (2)
  - Drug interaction [Unknown]
  - Deep vein thrombosis [Unknown]

NARRATIVE: CASE EVENT DATE: 20200304
